FAERS Safety Report 15636209 (Version 2)
Quarter: 2021Q3

REPORT INFORMATION
  Report Type: Other
  Country: US (occurrence: US)
  Receive Date: 20181120
  Receipt Date: 20210917
  Transmission Date: 20211014
  Serious: Yes (Death, Other)
  Sender: FDA-Public Use
  Company Number: US-ROCHE-2215347

PATIENT
  Age: 50 Year
  Sex: Female

DRUGS (21)
  1. LORATADINE. [Concomitant]
     Active Substance: LORATADINE
  2. TOPIRAMATE. [Concomitant]
     Active Substance: TOPIRAMATE
  3. SYNTHROID [Concomitant]
     Active Substance: LEVOTHYROXINE SODIUM
     Dosage: 1 TAB Q AM EMPTY
  4. ORENCIA [Suspect]
     Active Substance: ABATACEPT
     Indication: PRODUCT USED FOR UNKNOWN INDICATION
     Route: 065
  5. PLAQUENIL [Concomitant]
     Active Substance: HYDROXYCHLOROQUINE SULFATE
  6. VALTREX [Concomitant]
     Active Substance: VALACYCLOVIR HYDROCHLORIDE
     Route: 048
  7. PROLIA [Concomitant]
     Active Substance: DENOSUMAB
     Dosage: 60 MG/ML
  8. RITUXAN [Suspect]
     Active Substance: RITUXIMAB
     Indication: RHEUMATOID ARTHRITIS
     Dosage: DAY 1 AND DAY 15
     Route: 065
  9. ACTEMRA [Suspect]
     Active Substance: TOCILIZUMAB
     Indication: RHEUMATOID ARTHRITIS
     Route: 065
  10. DIFLUCAN [Concomitant]
     Active Substance: FLUCONAZOLE
  11. DICLOFENAC SODIUM. [Concomitant]
     Active Substance: DICLOFENAC SODIUM
     Route: 061
  12. ERGOCALCIFEROL. [Concomitant]
     Active Substance: ERGOCALCIFEROL
  13. RESTASIS [Concomitant]
     Active Substance: CYCLOSPORINE
  14. XANAX [Concomitant]
     Active Substance: ALPRAZOLAM
  15. CELLCEPT [Suspect]
     Active Substance: MYCOPHENOLATE MOFETIL\MYCOPHENOLATE MOFETIL HYDROCHLORIDE
     Indication: PRODUCT USED FOR UNKNOWN INDICATION
     Route: 065
  16. HYDROCHLOROTHIAZIDE. [Concomitant]
     Active Substance: HYDROCHLOROTHIAZIDE
  17. ALBUTEROL SULFATE. [Concomitant]
     Active Substance: ALBUTEROL SULFATE
  18. MAXALT [Concomitant]
     Active Substance: RIZATRIPTAN BENZOATE
  19. ESOMEPRAZOLE MAGNESIUM. [Concomitant]
     Active Substance: ESOMEPRAZOLE MAGNESIUM
  20. MIRALAX [Concomitant]
     Active Substance: POLYETHYLENE GLYCOL 3350
     Route: 048
  21. MONTELUKAST SODIUM. [Concomitant]
     Active Substance: MONTELUKAST SODIUM
     Route: 048

REACTIONS (24)
  - Increased tendency to bruise [Unknown]
  - Neurological symptom [Unknown]
  - Dry skin [Unknown]
  - Raynaud^s phenomenon [Unknown]
  - Abdominal distension [Unknown]
  - Drug-induced liver injury [Unknown]
  - Sleep disorder [Unknown]
  - Dyspnoea exertional [Unknown]
  - Erythema [Unknown]
  - Livedo reticularis [Unknown]
  - Death [Fatal]
  - Bicytopenia [Unknown]
  - Photosensitivity reaction [Unknown]
  - Diarrhoea [Unknown]
  - Dizziness [Unknown]
  - Fatigue [Unknown]
  - Dry mouth [Unknown]
  - Lymphadenopathy [Unknown]
  - Skin lesion [Unknown]
  - Temperature intolerance [Unknown]
  - Constipation [Unknown]
  - Micturition urgency [Unknown]
  - Ecchymosis [Unknown]
  - Pyrexia [Unknown]

NARRATIVE: CASE EVENT DATE: 20210824
